FAERS Safety Report 7476089-2 (Version None)
Quarter: 2011Q2

REPORT INFORMATION
  Report Type: 
  Country: None (occurrence: None)
  Receive Date: 20110512
  Receipt Date: 20110502
  Transmission Date: 20111010
  Serious: Yes (Other)
  Sender: FDA-Public Use
  Company Number: TR-BRISTOL-MYERS SQUIBB COMPANY-15730914

PATIENT

DRUGS (1)
  1. CARBOPLATIN [Suspect]
     Indication: INTRAOCULAR RETINOBLASTOMA
     Dosage: 2 ML.SUBTENON INJECTIONS. CYCLE 1ST, 2ND.  ALSO RECIEVED SYSTEMIC THERAPY
     Route: 057

REACTIONS (1)
  - CELLULITIS ORBITAL [None]
